FAERS Safety Report 5996202-3 (Version None)
Quarter: 2008Q4

REPORT INFORMATION
  Report Type: 
  Country: None (occurrence: None)
  Receive Date: 20081212
  Receipt Date: 20081013
  Transmission Date: 20090506
  Serious: No
  Sender: FDA-Public Use
  Company Number: US-ABBOTT-08P-163-0481325-00

PATIENT
  Sex: Female

DRUGS (5)
  1. HUMIRA [Suspect]
     Indication: RHEUMATOID ARTHRITIS
     Route: 058
     Dates: end: 20071201
  2. HUMIRA [Suspect]
     Route: 058
     Dates: start: 20080819, end: 20080901
  3. HUMIRA [Suspect]
     Route: 058
  4. UNKNOWN MEDICATION [Concomitant]
     Indication: BONE DISORDER
  5. CHLORAMPHENICOL [Concomitant]
     Indication: DENTAL CARE
     Dates: start: 20080901

REACTIONS (6)
  - ASTHENIA [None]
  - INFECTION [None]
  - NASAL CONGESTION [None]
  - PAIN [None]
  - RHINORRHOEA [None]
  - SENSATION OF HEAVINESS [None]
